FAERS Safety Report 22384344 (Version 3)
Quarter: 2024Q3

REPORT INFORMATION
  Report Type: Report from Study
  Country: DE (occurrence: DE)
  Receive Date: 20230530
  Receipt Date: 20240916
  Transmission Date: 20241016
  Serious: Yes (Other)
  Sender: AKCEA THERAPEUTICS
  Company Number: DE-AKCEA THERAPEUTICS, INC.-2023IS001157

PATIENT

DRUGS (1)
  1. TEGSEDI [Suspect]
     Active Substance: INOTERSEN SODIUM
     Indication: Hereditary neuropathic amyloidosis
     Dosage: 284 MILLIGRAM, QW
     Route: 058
     Dates: start: 20191120, end: 20230307

REACTIONS (2)
  - Cardiomegaly [Unknown]
  - General physical health deterioration [Unknown]
